FAERS Safety Report 5879362-4 (Version None)
Quarter: 2008Q3

REPORT INFORMATION
  Report Type: 
  Country: None (occurrence: None)
  Receive Date: 20080912
  Receipt Date: 20080904
  Transmission Date: 20090109
  Serious: Yes (Hospitalization)
  Sender: FDA-Public Use
  Company Number: A0747130A

PATIENT
  Age: 57 Year
  Sex: Male
  Weight: 77.3 kg

DRUGS (1)
  1. AVANDIA [Suspect]
     Dosage: 4MG PER DAY
     Route: 048
     Dates: start: 20000101, end: 20040101

REACTIONS (10)
  - CHEST PAIN [None]
  - CORONARY ARTERY DISEASE [None]
  - DEPRESSION [None]
  - FATIGUE [None]
  - HYPERLIPIDAEMIA [None]
  - HYPERTENSION [None]
  - MOVEMENT DISORDER [None]
  - NERVOUSNESS [None]
  - NEUROPATHY PERIPHERAL [None]
  - PAIN [None]
